FAERS Safety Report 9037177 (Version 1)
Quarter: 2013Q1

REPORT INFORMATION
  Report Type: Report from Study
  Country: US (occurrence: US)
  Receive Date: 20130129
  Receipt Date: 20130129
  Transmission Date: 20140127
  Serious: No
  Sender: FDA-Public Use
  Company Number: US-ABBOTT-12P-163-0893821-00

PATIENT
  Age: 52 Year
  Sex: Female

DRUGS (9)
  1. HUMIRA 40 MG/0.8 ML PEN [Suspect]
     Indication: PSORIATIC ARTHROPATHY
     Dates: start: 201112
  2. CYMBALTA [Concomitant]
     Indication: DEPRESSION
  3. CYMBALTA [Concomitant]
     Indication: PAIN
  4. LAMICTAL [Concomitant]
     Indication: BIPOLAR DISORDER
  5. PRINZIDE [Concomitant]
     Indication: HYPERTENSION
     Dosage: 20/12.5
  6. GLUCOPHAGE [Concomitant]
     Indication: DIABETES MELLITUS
  7. BYETTA [Concomitant]
     Indication: DIABETES MELLITUS
  8. PRILOSEC [Concomitant]
     Indication: GASTROOESOPHAGEAL REFLUX DISEASE
  9. PARAFON-FORTE [Concomitant]
     Indication: MUSCLE RELAXANT THERAPY

REACTIONS (4)
  - Psoriatic arthropathy [Not Recovered/Not Resolved]
  - Arthralgia [Not Recovered/Not Resolved]
  - Pruritus [Not Recovered/Not Resolved]
  - Dental caries [Not Recovered/Not Resolved]
